FAERS Safety Report 10785660 (Version 1)
Quarter: 2015Q1

REPORT INFORMATION
  Report Type: Spontaneous
  Country: US (occurrence: US)
  Receive Date: 20150211
  Receipt Date: 20150211
  Transmission Date: 20150721
  Serious: No
  Sender: FDA-Public Use
  Company Number: US-GLAXOSMITHKLINE-A1089605A

PATIENT

DRUGS (1)
  1. ABREVA [Suspect]
     Active Substance: DOCOSANOL
     Indication: ORAL HERPES
     Dates: start: 20140826, end: 20140907

REACTIONS (2)
  - Oral herpes [Recovered/Resolved]
  - Application site scar [Not Recovered/Not Resolved]

NARRATIVE: CASE EVENT DATE: 2014
